FAERS Safety Report 6116438-0 (Version None)
Quarter: 2009Q1

REPORT INFORMATION
  Report Type: 
  Country: None (occurrence: None)
  Receive Date: 20090314
  Receipt Date: 20081219
  Transmission Date: 20090719
  Serious: No
  Sender: FDA-Public Use
  Company Number: US-ABBOTT-08P-163-0494222-00

PATIENT
  Sex: Male
  Weight: 99.88 kg

DRUGS (2)
  1. HUMIRA [Suspect]
     Indication: PSORIATIC ARTHROPATHY
     Dates: start: 20060101
  2. HUMIRA [Suspect]
     Indication: PSORIASIS
     Dosage: HUMIRA PRE-FILLED SYRINGE
     Dates: end: 20060101

REACTIONS (1)
  - INJECTION SITE PAIN [None]
